FAERS Safety Report 7095120-X (Version None)
Quarter: 2010Q4

REPORT INFORMATION
  Report Type: 
  Country: None (occurrence: None)
  Receive Date: 20101111
  Receipt Date: 20101103
  Transmission Date: 20110411
  Serious: No
  Sender: FDA-Public Use
  Company Number: US-BIOGENIDEC-2010BI039171

PATIENT
  Sex: Male

DRUGS (3)
  1. TYSABRI [Suspect]
     Indication: MULTIPLE SCLEROSIS
     Route: 042
     Dates: start: 20100811
  2. ORAL BACLOFEN [Concomitant]
     Indication: MUSCULOSKELETAL STIFFNESS
  3. ORAL BACLOFEN [Concomitant]
     Indication: MUSCLE SPASTICITY

REACTIONS (1)
  - SOMNOLENCE [None]
